FAERS Safety Report 9309973 (Version 3)
Quarter: 2013Q3

REPORT INFORMATION
  Report Type: Spontaneous
  Country: JP (occurrence: JP)
  Receive Date: 20130527
  Receipt Date: 20130712
  Transmission Date: 20140515
  Serious: Yes (Hospitalization, Other)
  Sender: FDA-Public Use
  Company Number: JP-009507513-1305JPN014021

PATIENT
  Age: 79 Year
  Sex: Female

DRUGS (6)
  1. REFLEX [Suspect]
     Indication: INSOMNIA
     Dosage: 7.5 MG, HS
     Route: 048
     Dates: start: 20130309, end: 20130309
  2. ETIZOLAM [Concomitant]
     Indication: INSOMNIA
     Dosage: DAILY DOSE : 0.25 MG
     Route: 048
     Dates: start: 20011226
  3. ZOLPIDEM TARTRATE [Concomitant]
     Indication: INSOMNIA
     Dosage: 10 MG, DAILY
     Route: 048
     Dates: start: 20010313
  4. CARVEDILOL [Concomitant]
     Indication: CARDIAC FAILURE CHRONIC
     Dosage: DAILY DOSE: 5MG
     Route: 048
     Dates: start: 20011226
  5. LANSOPRAZOLE [Concomitant]
     Indication: GASTROOESOPHAGEAL REFLUX DISEASE
     Dosage: DAILY DOSE : 15 MG
     Route: 048
     Dates: start: 20011226
  6. ITOPRIDE HYDROCHLORIDE [Concomitant]
     Indication: GASTRITIS
     Dosage: DAILY DOSE : 150 MG
     Route: 048
     Dates: start: 20011226

REACTIONS (1)
  - Loss of consciousness [Recovered/Resolved]
